FAERS Safety Report 25163449 (Version 1)
Quarter: 2025Q2

REPORT INFORMATION
  Report Type: Report from Study
  Country: US (occurrence: US)
  Receive Date: 20250404
  Receipt Date: 20250404
  Transmission Date: 20250716
  Serious: Yes (Hospitalization, Other)
  Sender: ABBVIE
  Company Number: US-ABBVIE-6202718

PATIENT
  Age: 73 Year
  Sex: Female

DRUGS (1)
  1. SKYRIZI [Suspect]
     Active Substance: RISANKIZUMAB-RZAA
     Indication: Crohn^s disease
     Route: 058
     Dates: start: 20220929

REACTIONS (3)
  - Colectomy [Recovering/Resolving]
  - Intestinal anastomosis [Recovering/Resolving]
  - Gastrointestinal anastomotic leak [Recovering/Resolving]

NARRATIVE: CASE EVENT DATE: 20250201
